FAERS Safety Report 15361211 (Version 1)
Quarter: 2018Q3

REPORT INFORMATION
  Report Type: Spontaneous
  Country: US (occurrence: US)
  Receive Date: 20180831
  Receipt Date: 20180831
  Transmission Date: 20181010
  Serious: No
  Sender: FDA-Public Use
  Company Number: None

PATIENT
  Age: 60 Year
  Sex: Female
  Weight: 78.47 kg

DRUGS (2)
  1. RIBAVIRIN 200 MG TABLET [Suspect]
     Active Substance: RIBAVIRIN
     Indication: HEPATITIS C
     Dosage: 600MG (3 TABLETS) BY MOUTH EVERY MORNING AND 600MG (3 TABLETS) EVERY EVENING AS DIRECTED
     Route: 048
     Dates: start: 201806
  2. EPCLUSA [Suspect]
     Active Substance: SOFOSBUVIR\VELPATASVIR
     Indication: HEPATITIS C
     Dosage: 1 TABLET BY MOUTH EVERY DAY WITH OR WITHOUT FOOD AS DIRECTED
     Route: 048
     Dates: start: 201806

REACTIONS (3)
  - Vomiting [None]
  - Abdominal distension [None]
  - Nausea [None]
